FAERS Safety Report 22380599 (Version 4)
Quarter: 2023Q2

REPORT INFORMATION
  Report Type: Spontaneous
  Country: DE (occurrence: None)
  Receive Date: 20230529
  Receipt Date: 20230626
  Transmission Date: 20230722
  Serious: Yes (Hospitalization, Other)
  Sender: FDA-Public Use
  Company Number: DE-ROCHE-3357499

PATIENT
  Age: 20 Year
  Sex: Female
  Weight: 85 kg

DRUGS (5)
  1. OCREVUS [Suspect]
     Active Substance: OCRELIZUMAB
     Indication: Relapsing-remitting multiple sclerosis
     Route: 042
     Dates: start: 20220705, end: 20230124
  2. CARBAMAZEPINE [Concomitant]
     Active Substance: CARBAMAZEPINE
     Indication: Product used for unknown indication
     Route: 048
     Dates: start: 202206
  3. TAPENTADOL [Concomitant]
     Active Substance: TAPENTADOL
     Route: 048
     Dates: start: 202206
  4. DULOXETINE [Concomitant]
     Active Substance: DULOXETINE
     Route: 048
     Dates: start: 202206
  5. PREGABALIN [Concomitant]
     Active Substance: PREGABALIN
     Route: 048
     Dates: start: 202205

REACTIONS (3)
  - Pancreatitis relapsing [Recovered/Resolved]
  - Bile duct stone [Recovered/Resolved]
  - Cholelithotomy [Recovered/Resolved]

NARRATIVE: CASE EVENT DATE: 20221101
